FAERS Safety Report 21343818 (Version 1)
Quarter: 2022Q3

REPORT INFORMATION
  Report Type: Spontaneous
  Country: GB (occurrence: GB)
  Receive Date: 20220916
  Receipt Date: 20220916
  Transmission Date: 20221027
  Serious: Yes (Other)
  Sender: FDA-Public Use
  Company Number: GB-MHRA-MED-202209022247280500-KPVSY

PATIENT
  Age: 36 Year
  Sex: Female
  Weight: 103 kg

DRUGS (4)
  1. ACETIC ACID [Suspect]
     Active Substance: ACETIC ACID
     Indication: Ear pain
     Dosage: FREQUENCY : 3,  THERAPY END DATE : NOT ASKED
     Dates: start: 20220822
  2. DEXAMETHASONE [Suspect]
     Active Substance: DEXAMETHASONE
     Indication: Ear pain
     Dosage: THERAPY END DATE : NOT ASKED, FREQUENCY : 3 , FREQUENCY TIME : 1 DAYS
     Dates: start: 20220822
  3. NEOMYCIN [Suspect]
     Active Substance: NEOMYCIN
     Indication: Ear pain
     Dosage: FREQUENCY : 3 , FREQUENCY TIME : 1 DAYS, THERAPY END DATE : NOT ASKED
     Dates: start: 20220822
  4. FLUOXETINE [Concomitant]
     Active Substance: FLUOXETINE HYDROCHLORIDE
     Indication: Depressed mood
     Dates: start: 2007

REACTIONS (2)
  - Headache [Not Recovered/Not Resolved]
  - Illness [Unknown]

NARRATIVE: CASE EVENT DATE: 20220902
